FAERS Safety Report 4300817-8 (Version None)
Quarter: 2004Q1

REPORT INFORMATION
  Report Type: 
  Country: None (occurrence: None)
  Receive Date: 20040218
  Receipt Date: 20040213
  Transmission Date: 20041129
  Serious: Yes (Life-Threatening, Hospitalization)
  Sender: FDA-Public Use
  Company Number: TCI2004A00439

PATIENT
  Age: 78 Year
  Sex: Male

DRUGS (5)
  1. LEUPROLIDE ACETATE [Suspect]
     Indication: METASTASES TO BONE
     Dosage: 3.75 MG (3.75 MG, 1 IN 28 D)X7 TIMES
     Route: 058
     Dates: start: 20030630, end: 20031215
  2. LEUPROLIDE ACETATE [Suspect]
     Indication: PROSTATE CANCER
     Dosage: 3.75 MG (3.75 MG, 1 IN 28 D)X7 TIMES
     Route: 058
     Dates: start: 20030630, end: 20031215
  3. FURTULON (DOXIFLURIDINE) (CAPSULES) [Suspect]
     Indication: COLON CANCER
     Dosage: 800 MG (800 MG, 1 D)
     Route: 048
     Dates: start: 20030826, end: 20040108
  4. FURTULON (DOXIFLURIDINE) (CAPSULES) [Suspect]
     Indication: SURGERY
     Dosage: 800 MG (800 MG, 1 D)
     Route: 048
     Dates: start: 20030826, end: 20040108
  5. PLETAAL (CILOSTAZOL) (TABLETS) [Suspect]
     Indication: ARTERIOSCLEROSIS
     Route: 048
     Dates: start: 20030826, end: 20040108

REACTIONS (9)
  - ACQUIRED HAEMOPHILIA WITH ANTI FVIII, XI, OR XIII [None]
  - ACTIVATED PARTIAL THROMBOPLASTIN TIME PROLONGED [None]
  - BACK PAIN [None]
  - COAGULATION FACTOR VIII LEVEL DECREASED [None]
  - HAEMOGLOBIN DECREASED [None]
  - HAEMOLYSIS [None]
  - HAEMORRHAGE [None]
  - RETROPERITONEAL HAEMATOMA [None]
  - SUBCUTANEOUS HAEMATOMA [None]
